FAERS Safety Report 19813275 (Version 1)
Quarter: 2021Q3

REPORT INFORMATION
  Report Type: Spontaneous
  Country: US (occurrence: US)
  Receive Date: 20210910
  Receipt Date: 20210910
  Transmission Date: 20211014
  Serious: No
  Sender: FDA-Public Use
  Company Number: US-009507513-2108USA003356

PATIENT
  Age: 53 Year
  Sex: Male

DRUGS (3)
  1. CANCIDAS [Suspect]
     Active Substance: CASPOFUNGIN ACETATE
     Indication: DISSEMINATED MUCORMYCOSIS
     Dosage: 50 MILLIGRAM, QD
     Route: 048
  2. AMPHOTERICIN [Concomitant]
     Active Substance: AMPHOTERICIN B
     Indication: DISSEMINATED MUCORMYCOSIS
     Dosage: 5 MILLIGRAM/KILOGRAM, QD
     Route: 042
  3. ISAVUCONAZOLE [Concomitant]
     Active Substance: ISAVUCONAZOLE
     Indication: DISSEMINATED MUCORMYCOSIS
     Dosage: 372 MILLIGRAM, QD
     Route: 042

REACTIONS (2)
  - Product use in unapproved indication [Unknown]
  - Incorrect route of product administration [Unknown]
